FAERS Safety Report 8386571-1 (Version None)
Quarter: 2012Q2

REPORT INFORMATION
  Report Type: 
  Country: None (occurrence: None)
  Receive Date: 20120525
  Receipt Date: 20110901
  Transmission Date: 20120825
  Serious: No
  Sender: FDA-Public Use
  Company Number: US-GLAXOSMITHKLINE-A0943194A

PATIENT
  Sex: Male

DRUGS (1)
  1. VERAMYST [Suspect]
     Route: 055

REACTIONS (2)
  - PRODUCT QUALITY ISSUE [None]
  - RHINALGIA [None]
